FAERS Safety Report 6903257-8 (Version None)
Quarter: 2010Q3

REPORT INFORMATION
  Report Type: 
  Country: None (occurrence: None)
  Receive Date: 20100803
  Receipt Date: 20080604
  Transmission Date: 20110219
  Serious: No
  Sender: FDA-Public Use
  Company Number: US-PFIZER INC-2008044616

PATIENT
  Sex: Female

DRUGS (4)
  1. LYRICA [Suspect]
     Indication: NERVE COMPRESSION
     Dates: start: 20080101
  2. ALCOHOL [Suspect]
  3. ZOLOFT [Concomitant]
     Dates: end: 20080101
  4. DIURETICS [Concomitant]

REACTIONS (3)
  - DRUG EFFECT DECREASED [None]
  - FATIGUE [None]
  - WEIGHT INCREASED [None]
